FAERS Safety Report 4836366-8 (Version None)
Quarter: 2005Q4

REPORT INFORMATION
  Report Type: 
  Country: None (occurrence: None)
  Receive Date: 20051123
  Receipt Date: 20041215
  Transmission Date: 20060501
  Serious: Yes (Death, Life-Threatening, Hospitalization)
  Sender: FDA-Public Use
  Company Number: JP-ROCHE-389459

PATIENT
  Age: 22 Year
  Sex: Female

DRUGS (46)
  1. CELLCEPT [Suspect]
     Indication: GRAFT VERSUS HOST DISEASE
     Route: 048
     Dates: start: 20021222, end: 20030102
  2. CELLCEPT [Suspect]
     Route: 048
     Dates: start: 20030103, end: 20030105
  3. CELLCEPT [Suspect]
     Route: 048
     Dates: start: 20030528, end: 20030813
  4. CELLCEPT [Suspect]
     Route: 048
     Dates: start: 20030814, end: 20030821
  5. CELLCEPT [Suspect]
     Route: 048
     Dates: start: 20030822, end: 20030830
  6. CELLCEPT [Suspect]
     Route: 048
     Dates: start: 20030831, end: 20030903
  7. PROGRAF [Suspect]
     Indication: PROPHYLAXIS AGAINST TRANSPLANT REJECTION
     Route: 041
     Dates: start: 20021211, end: 20021229
  8. PROGRAF [Suspect]
     Route: 041
     Dates: start: 20021230, end: 20030202
  9. PROGRAF [Suspect]
     Indication: GRAFT VERSUS HOST DISEASE
     Route: 048
     Dates: start: 20030203, end: 20030204
  10. PROGRAF [Suspect]
     Route: 048
     Dates: start: 20030205, end: 20030209
  11. PROGRAF [Suspect]
     Route: 048
     Dates: start: 20030210, end: 20030213
  12. PROGRAF [Suspect]
     Route: 048
     Dates: start: 20030214, end: 20030312
  13. PROGRAF [Suspect]
     Route: 048
     Dates: start: 20030313, end: 20030315
  14. PROGRAF [Suspect]
     Route: 048
     Dates: start: 20030316, end: 20030430
  15. PROGRAF [Suspect]
     Route: 048
     Dates: start: 20030501, end: 20030802
  16. PROGRAF [Suspect]
     Route: 048
     Dates: start: 20030803, end: 20030810
  17. PROGRAF [Suspect]
     Route: 048
     Dates: start: 20030811, end: 20030827
  18. PROGRAF [Suspect]
     Route: 048
     Dates: start: 20030828, end: 20030902
  19. PROGRAF [Suspect]
     Route: 048
     Dates: start: 20030903, end: 20030910
  20. PROGRAF [Suspect]
     Route: 048
     Dates: start: 20030911, end: 20030921
  21. PROGRAF [Suspect]
     Route: 048
     Dates: start: 20030922, end: 20031101
  22. PROGRAF [Suspect]
     Route: 048
     Dates: start: 20031102, end: 20031213
  23. PROGRAF [Suspect]
     Route: 048
     Dates: start: 20031214, end: 20031220
  24. PROGRAF [Suspect]
     Route: 048
     Dates: start: 20031221, end: 20031227
  25. METHYLPREDNISOLONE [Suspect]
     Indication: PROPHYLAXIS AGAINST TRANSPLANT REJECTION
     Route: 065
     Dates: start: 20021217, end: 20021219
  26. METHYLPREDNISOLONE [Suspect]
     Dosage: DOSAGE ENTERED AS REPORTED.
     Route: 065
     Dates: start: 20021220, end: 20021221
  27. METHYLPREDNISOLONE [Suspect]
     Route: 065
     Dates: start: 20021222, end: 20030112
  28. METHYLPREDNISOLONE [Suspect]
     Route: 065
     Dates: start: 20030113, end: 20030119
  29. PREDONINE [Suspect]
     Indication: PROPHYLAXIS AGAINST TRANSPLANT REJECTION
     Route: 065
     Dates: start: 20021217, end: 20030112
  30. PREDONINE [Suspect]
     Route: 065
     Dates: start: 20030113, end: 20030119
  31. PREDONINE [Suspect]
     Route: 065
     Dates: start: 20030120, end: 20030125
  32. PREDONINE [Suspect]
     Route: 065
     Dates: start: 20030126, end: 20030204
  33. PREDONINE [Suspect]
     Route: 065
     Dates: start: 20030205, end: 20030302
  34. PREDONINE [Suspect]
     Route: 065
     Dates: start: 20030303, end: 20030309
  35. PREDONINE [Suspect]
     Route: 065
     Dates: start: 20030310, end: 20030319
  36. PREDONINE [Suspect]
     Route: 065
     Dates: start: 20030320, end: 20030321
  37. PREDONINE [Suspect]
     Route: 065
     Dates: start: 20030322, end: 20030402
  38. PREDONINE [Suspect]
     Route: 065
     Dates: start: 20030403, end: 20030409
  39. PREDONINE [Suspect]
     Route: 065
     Dates: start: 20030410, end: 20030416
  40. PREDONINE [Suspect]
     Route: 065
     Dates: start: 20030417, end: 20030423
  41. PREDONINE [Suspect]
     Route: 065
     Dates: start: 20030424, end: 20030507
  42. PREDONINE [Suspect]
     Route: 065
     Dates: start: 20030508, end: 20030802
  43. PREDONINE [Suspect]
     Route: 065
     Dates: start: 20030803, end: 20030913
  44. PREDONINE [Suspect]
     Route: 065
     Dates: start: 20030914
  45. METHOTREXATE [Concomitant]
  46. FK506 [Concomitant]

REACTIONS (12)
  - B-CELL LYMPHOMA [None]
  - BRAIN HERNIATION [None]
  - BRAIN NEOPLASM [None]
  - BRAIN OEDEMA [None]
  - CEREBRAL HAEMORRHAGE [None]
  - CEREBRAL TOXOPLASMOSIS [None]
  - CONVULSION [None]
  - DEPRESSED LEVEL OF CONSCIOUSNESS [None]
  - DISEASE RECURRENCE [None]
  - EPSTEIN-BARR VIRUS INFECTION [None]
  - GRAFT VERSUS HOST DISEASE [None]
  - INTRACRANIAL PRESSURE INCREASED [None]
